FAERS Safety Report 5829493-X (Version None)
Quarter: 2008Q3

REPORT INFORMATION
  Report Type: 
  Country: None (occurrence: None)
  Receive Date: 20080729
  Receipt Date: 20080717
  Transmission Date: 20090109
  Serious: Yes (Hospitalization)
  Sender: FDA-Public Use
  Company Number: CERZ-1000298

PATIENT
  Age: 47 Year
  Sex: Female
  Weight: 80 kg

DRUGS (3)
  1. CEREZYME [Suspect]
     Indication: GAUCHER'S DISEASE
     Dosage: 4600 U QW INTRAVENOUS; 60 U/KG QW INTRAVENOUS; 30 U/KG Q2W INTRAVENOUS; 30 U/KG Q2W INTRAVENOUS
     Route: 042
     Dates: end: 20000301
  2. CEREZYME [Suspect]
     Indication: GAUCHER'S DISEASE
     Dosage: 4600 U QW INTRAVENOUS; 60 U/KG QW INTRAVENOUS; 30 U/KG Q2W INTRAVENOUS; 30 U/KG Q2W INTRAVENOUS
     Route: 042
     Dates: start: 20011101, end: 20020701
  3. CEREZYME [Suspect]
     Indication: GAUCHER'S DISEASE
     Dosage: 4600 U QW INTRAVENOUS; 60 U/KG QW INTRAVENOUS; 30 U/KG Q2W INTRAVENOUS; 30 U/KG Q2W INTRAVENOUS
     Route: 042
     Dates: start: 20020701

REACTIONS (8)
  - ANAEMIA [None]
  - BONE DISORDER [None]
  - DRUG INEFFECTIVE [None]
  - MYELOFIBROSIS [None]
  - POST PROCEDURAL INFECTION [None]
  - PRURITUS [None]
  - RASH ERYTHEMATOUS [None]
  - SELECTIVE IGA IMMUNODEFICIENCY [None]
